FAERS Safety Report 9209821 (Version 1)
Quarter: 2013Q2

REPORT INFORMATION
  Report Type: Spontaneous
  Country: US (occurrence: None)
  Receive Date: 20130403
  Receipt Date: 20130403
  Transmission Date: 20140414
  Serious: Yes (Other)
  Sender: FDA-Public Use
  Company Number: None

PATIENT
  Age: 69 Year
  Sex: Female
  Weight: 68.04 kg

DRUGS (1)
  1. ZOLOFT [Suspect]
     Indication: ANXIETY

REACTIONS (9)
  - Serotonin syndrome [None]
  - Drug withdrawal syndrome [None]
  - Initial insomnia [None]
  - Blood creatine increased [None]
  - Hyperacusis [None]
  - Weight decreased [None]
  - Obsessive-compulsive disorder [None]
  - Asthma [None]
  - Crying [None]
